FAERS Safety Report 6445569-0 (Version None)
Quarter: 2009Q4

REPORT INFORMATION
  Report Type: 
  Country: None (occurrence: None)
  Receive Date: 20091112
  Receipt Date: 20091102
  Transmission Date: 20100525
  Serious: Yes (Death)
  Sender: FDA-Public Use
  Company Number: 2009US003825

PATIENT
  Age: 72 Year
  Sex: Male

DRUGS (2)
  1. LEXISCAN [Suspect]
     Indication: SCAN MYOCARDIAL PERFUSION
     Dosage: IV NOS
     Route: 042
     Dates: start: 20090715, end: 20090715
  2. NITROGLYCERIN [Concomitant]

REACTIONS (1)
  - MYOCARDIAL INFARCTION [None]
